FAERS Safety Report 18811284 (Version 1)
Quarter: 2021Q1

REPORT INFORMATION
  Report Type: Spontaneous
  Country: FR (occurrence: FR)
  Receive Date: 20210130
  Receipt Date: 20210130
  Transmission Date: 20210419
  Serious: Yes (Hospitalization, Other)
  Sender: FDA-Public Use
  Company Number: FR-AUROBINDO-AUR-APL-2021-003779

PATIENT
  Age: 2 Year
  Sex: Female
  Weight: 12 kg

DRUGS (9)
  1. PRIVIGEN [Suspect]
     Active Substance: HUMAN IMMUNOGLOBULIN G
     Dosage: UNK
     Route: 042
  2. DOLIPRANE [Concomitant]
     Active Substance: ACETAMINOPHEN
     Indication: PYREXIA
     Dosage: 180 MILLIGRAM
     Route: 048
     Dates: start: 20130308
  3. AMOXICILLIN. [Suspect]
     Active Substance: AMOXICILLIN
     Indication: VIRAL INFECTION
     Dosage: UNK
     Route: 048
     Dates: start: 20130305
  4. PRIVIGEN [Suspect]
     Active Substance: HUMAN IMMUNOGLOBULIN G
     Dosage: 24 GRAM, 1 TOTAL (2G/KG/DAY; MAX. INFUSION RATE: 0.06 ML/MIN)
     Route: 042
     Dates: start: 20130310, end: 20130310
  5. ASPIRIN. [Concomitant]
     Active Substance: ASPIRIN
     Indication: KAWASAKI^S DISEASE
     Dosage: 250 MILLIGRAM
     Route: 048
     Dates: start: 20130308
  6. MOPRAL [Concomitant]
     Active Substance: OMEPRAZOLE
     Indication: PROPHYLAXIS
     Dosage: 10 MILLIGRAM
     Route: 048
     Dates: start: 20130308
  7. PRIVIGEN [Suspect]
     Active Substance: HUMAN IMMUNOGLOBULIN G
     Dosage: UNK
     Route: 042
  8. PRIVIGEN [Suspect]
     Active Substance: HUMAN IMMUNOGLOBULIN G
     Indication: KAWASAKI^S DISEASE
     Dosage: 24 GRAM, 1 TOTAL (2G/KG/DAY; MAX. INFUSION RATE: 0.06 ML/MIN)
     Route: 042
     Dates: start: 20130308, end: 20130308
  9. PANTOPRAZOLE [Concomitant]
     Active Substance: PANTOPRAZOLE
     Indication: PRODUCT USED FOR UNKNOWN INDICATION
     Dosage: UNK
     Route: 065
     Dates: start: 20130310

REACTIONS (7)
  - Haemoglobin decreased [Recovered/Resolved]
  - Off label use [Unknown]
  - Haemolysis [Unknown]
  - Tachycardia [Unknown]
  - Pallor [Unknown]
  - Haemolytic anaemia [Recovered/Resolved]
  - No adverse event [Unknown]

NARRATIVE: CASE EVENT DATE: 20130311
